FAERS Safety Report 6123107-X (Version None)
Quarter: 2009Q1

REPORT INFORMATION
  Report Type: 
  Country: None (occurrence: None)
  Receive Date: 20090318
  Receipt Date: 20090306
  Transmission Date: 20090719
  Serious: Yes (Hospitalization, Other)
  Sender: FDA-Public Use
  Company Number: US-AVENTIS-200911835US

PATIENT
  Age: 69 Year
  Sex: Female

DRUGS (4)
  1. LANTUS [Suspect]
     Route: 058
  2. LANTUS [Suspect]
     Route: 058
  3. OPTICLIK (INSULIN INJECTION PEN) [Suspect]
  4. UNKNOWN DRUG [Concomitant]
     Dosage: DOSE: UNK

REACTIONS (8)
  - ARTHRITIS [None]
  - BLOOD GLUCOSE INCREASED [None]
  - FALL [None]
  - HYPOGLYCAEMIA [None]
  - MULTIPLE INJURIES [None]
  - PAIN [None]
  - PAIN IN EXTREMITY [None]
  - ROAD TRAFFIC ACCIDENT [None]
